FAERS Safety Report 9337117 (Version 2)
Quarter: 2013Q3

REPORT INFORMATION
  Report Type: Spontaneous
  Country: US (occurrence: US)
  Receive Date: 20130607
  Receipt Date: 20130912
  Transmission Date: 20140515
  Serious: Yes (Other)
  Sender: FDA-Public Use
  Company Number: US-JNJFOC-20130520856

PATIENT
  Age: 52 Year
  Sex: Female
  Weight: 138.8 kg

DRUGS (7)
  1. STELARA [Suspect]
     Indication: PSORIASIS
     Route: 058
     Dates: start: 20130523
  2. STELARA [Suspect]
     Indication: PSORIASIS
     Route: 058
     Dates: start: 20130821, end: 20130821
  3. LOPRESSOR [Concomitant]
     Route: 065
  4. BUSPAR [Concomitant]
     Route: 065
  5. PAXIL [Concomitant]
     Route: 065
  6. METFORMIN [Concomitant]
     Route: 065
  7. MELOXICAM [Concomitant]
     Route: 065

REACTIONS (2)
  - Staphylococcal infection [Unknown]
  - Cellulitis [Unknown]
